FAERS Safety Report 4643135-0 (Version None)
Quarter: 2005Q2

REPORT INFORMATION
  Report Type: 
  Country: None (occurrence: None)
  Receive Date: 20050422
  Receipt Date: 20050325
  Transmission Date: 20051028
  Serious: Yes (Disabling)
  Sender: FDA-Public Use
  Company Number: US-MERCK-0503USA04799

PATIENT
  Age: 57 Year
  Sex: Male
  Weight: 73 kg

DRUGS (4)
  1. ZOCOR [Suspect]
     Indication: BLOOD CHOLESTEROL INCREASED
     Route: 048
     Dates: start: 20020101, end: 20040701
  2. ZOCOR [Suspect]
     Route: 048
     Dates: start: 20040701, end: 20050101
  3. ZOCOR [Suspect]
     Route: 048
     Dates: start: 20050101, end: 20050301
  4. CRESTOR [Concomitant]
     Route: 065
     Dates: start: 20050301

REACTIONS (1)
  - LOSS OF LIBIDO [None]
